FAERS Safety Report 8546864-1 (Version None)
Quarter: 2012Q3

REPORT INFORMATION
  Report Type: 
  Country: None (occurrence: None)
  Receive Date: 20120727
  Receipt Date: 20120113
  Transmission Date: 20120928
  Serious: No
  Sender: FDA-Public Use
  Company Number: US-ASTRAZENECA-2012SE02676

PATIENT
  Age: 47 Year
  Sex: Female
  Weight: 99.8 kg

DRUGS (3)
  1. SEROQUEL [Suspect]
     Indication: DEPRESSION
     Route: 048
  2. SEROQUEL [Suspect]
     Indication: SLEEP DISORDER
     Route: 048
  3. LIPROCIN [Concomitant]

REACTIONS (4)
  - DYSPNOEA [None]
  - MUSCLE TIGHTNESS [None]
  - OFF LABEL USE [None]
  - HEART RATE INCREASED [None]
